FAERS Safety Report 22089649 (Version 1)
Quarter: 2023Q1

REPORT INFORMATION
  Report Type: Spontaneous
  Country: US (occurrence: None)
  Receive Date: 20230310
  Receipt Date: 20230310
  Transmission Date: 20230417
  Serious: Yes (Death)
  Sender: FDA-Public Use
  Company Number: None

PATIENT
  Age: 72 Year
  Sex: Male
  Weight: 94.8 kg

DRUGS (13)
  1. TEMOZOLOMIDE [Suspect]
     Active Substance: TEMOZOLOMIDE
     Indication: Malignant connective tissue neoplasm
     Dosage: FREQUENCY : DAILY;?
     Route: 048
     Dates: end: 20230309
  2. TEMOZOLOMIDE [Concomitant]
     Active Substance: TEMOZOLOMIDE
     Dosage: FREQUENCY : DAILY;?
     Route: 048
     Dates: end: 20230309
  3. AMLODIPINE [Concomitant]
  4. ASPIRIN [Concomitant]
  5. DOXEPIN [Concomitant]
     Active Substance: DOXEPIN
  6. FAMOTIDINE [Concomitant]
  7. METOPROLOL TARTRATE [Concomitant]
  8. ONDANSETRON [Concomitant]
  9. PROCHLORPERAZINE [Concomitant]
  10. TRANDOLAPRIL [Concomitant]
  11. TRIAMTERENE-HCTZ [Concomitant]
  12. VERAPAMIL HCI ER [Concomitant]
  13. TEMOZOLOMIDE [Suspect]
     Active Substance: TEMOZOLOMIDE
     Indication: Soft tissue sarcoma

REACTIONS (1)
  - Death [None]
